FAERS Safety Report 10654838 (Version 1)
Quarter: 2014Q4

REPORT INFORMATION
  Report Type: Spontaneous
  Country: US (occurrence: US)
  Receive Date: 20141216
  Receipt Date: 20141216
  Transmission Date: 20150529
  Serious: No
  Sender: FDA-Public Use
  Company Number: US-PFIZER INC-2014343269

PATIENT
  Sex: Female

DRUGS (7)
  1. TEGRETOL [Suspect]
     Active Substance: CARBAMAZEPINE
     Dosage: UNK
     Route: 048
  2. IMMUNOGLOBULINS [Suspect]
     Active Substance: HUMAN IMMUNOGLOBULIN G
     Dosage: UNK
  3. POTASSIUM BICARBONATE. [Suspect]
     Active Substance: POTASSIUM BICARBONATE
     Dosage: UNK
  4. IMURAN [Suspect]
     Active Substance: AZATHIOPRINE
     Dosage: UNK
  5. CYTOXAN [Suspect]
     Active Substance: CYCLOPHOSPHAMIDE
     Dosage: UNK
  6. LOPID [Suspect]
     Active Substance: GEMFIBROZIL
     Dosage: 600 MG, UNK
  7. ERYTHROMYCIN. [Suspect]
     Active Substance: ERYTHROMYCIN
     Dosage: UNK

REACTIONS (1)
  - Drug hypersensitivity [Unknown]
